FAERS Safety Report 9310328 (Version 3)
Quarter: 2013Q4

REPORT INFORMATION
  Report Type: Spontaneous
  Country: US (occurrence: US)
  Receive Date: 20130527
  Receipt Date: 20131010
  Transmission Date: 20140711
  Serious: Yes (Life-Threatening, Congenital Anomaly, Other)
  Sender: FDA-Public Use
  Company Number: US-PFIZER INC-2013158278

PATIENT
  Sex: Male

DRUGS (11)
  1. EFFEXOR [Suspect]
     Indication: DEPRESSION
     Dosage: UNK
     Route: 064
  2. EFFEXOR [Suspect]
     Indication: ANXIETY
  3. ZOLOFT [Suspect]
     Dosage: UNK
     Route: 064
     Dates: start: 2001
  4. SERTRALINE HCL [Suspect]
     Indication: ANXIETY
     Dosage: UNK
     Route: 064
     Dates: start: 2001
  5. SERTRALINE HCL [Suspect]
     Indication: DEPRESSION
  6. XANAX [Concomitant]
     Dosage: UNK
     Route: 064
  7. EFFEXOR-XR [Concomitant]
     Dosage: UNK
     Route: 064
  8. VICODIN [Concomitant]
     Dosage: UNK
     Route: 064
  9. ALPRAZOLAM [Concomitant]
     Dosage: UNK
     Route: 064
  10. DICLOXACILLIN [Concomitant]
     Dosage: UNK
     Route: 064
  11. BETAMETHASONE VALERATE [Concomitant]
     Dosage: 0.1 %, UNK
     Route: 064

REACTIONS (3)
  - Maternal exposure during pregnancy [Unknown]
  - Craniosynostosis [Unknown]
  - Heart disease congenital [Unknown]
